FAERS Safety Report 4508048-3 (Version None)
Quarter: 2004Q4

REPORT INFORMATION
  Report Type: 
  Country: None (occurrence: None)
  Receive Date: 20041123
  Receipt Date: 20031001
  Transmission Date: 20050328
  Serious: No
  Sender: FDA-Public Use
  Company Number: US-GLAXOSMITHKLINE-A0428274A

PATIENT
  Age: 56 Year
  Sex: Female

DRUGS (15)
  1. WELLBUTRIN [Suspect]
     Indication: DEPRESSION
     Dosage: 150MG PER DAY
     Route: 048
     Dates: start: 20030920, end: 20030930
  2. KEFLEX [Concomitant]
  3. ADVAIR [Concomitant]
  4. DETROL [Concomitant]
  5. SINGULAIR [Concomitant]
  6. PREMPRO [Concomitant]
  7. BENADRYL [Concomitant]
  8. ACIPHEX [Concomitant]
  9. CELEBREX [Concomitant]
  10. AMBIEN [Concomitant]
  11. CENTRUM MULTIVITAMIN [Concomitant]
  12. DONNATAL [Concomitant]
  13. LOMOTIL [Concomitant]
  14. OXYGEN THERAPY [Concomitant]
  15. ANTIBIOTIC (UNSPECIFIED) [Concomitant]

REACTIONS (13)
  - AGITATION [None]
  - ANGER [None]
  - CONSTIPATION [None]
  - DIZZINESS [None]
  - DRY MOUTH [None]
  - HEADACHE [None]
  - HEART RATE INCREASED [None]
  - HYPERHIDROSIS [None]
  - INSOMNIA [None]
  - IRRITABILITY [None]
  - MIDDLE INSOMNIA [None]
  - PRURITUS [None]
  - SOMNOLENCE [None]
